FAERS Safety Report 5369403-5 (Version None)
Quarter: 2007Q2

REPORT INFORMATION
  Report Type: 
  Country: None (occurrence: None)
  Receive Date: 20070625
  Receipt Date: 20070501
  Transmission Date: 20071010
  Serious: Yes (Hospitalization)
  Sender: FDA-Public Use
  Company Number: US-ASTRAZENECA-2007UW08848

PATIENT
  Age: 81 Year
  Sex: Female

DRUGS (10)
  1. CRESTOR [Suspect]
     Indication: HYPERLIPIDAEMIA
     Route: 048
     Dates: start: 20060907, end: 20070201
  2. TIMOLOL MALEATE [Concomitant]
  3. LEVOTHYROXINE SODIUM [Concomitant]
  4. FLUTICASONE PROPIONATE [Concomitant]
  5. MONTELUKAST SODIUM [Concomitant]
  6. POTASSIUM CHLORIDE [Concomitant]
  7. MACROGOL [Concomitant]
  8. ESOMEPRAZOLE MAGNESIUM [Concomitant]
     Route: 048
  9. DOCUSATE SODIUM [Concomitant]
  10. PLANTAGO OVATA [Concomitant]

REACTIONS (1)
  - TRANSAMINASES INCREASED [None]
